FAERS Safety Report 7451315-4 (Version None)
Quarter: 2011Q2

REPORT INFORMATION
  Report Type: 
  Country: None (occurrence: None)
  Receive Date: 20110422
  Receipt Date: 20110408
  Transmission Date: 20111010
  Serious: Yes (Other)
  Sender: FDA-Public Use
  Company Number: FK201100709

PATIENT
  Age: 36 Year
  Sex: Female

DRUGS (1)
  1. PROGESTERONE [Suspect]
     Indication: IN VITRO FERTILISATION
     Dosage: INTRAVENOUS (NOT OTHERWISE SPECIFIED)
     Route: 042

REACTIONS (15)
  - URTICARIA [None]
  - PRESYNCOPE [None]
  - DERMATITIS [None]
  - AUTOIMMUNE DISORDER [None]
  - HYPERHIDROSIS [None]
  - ANAPHYLACTIC REACTION [None]
  - ANGIOEDEMA [None]
  - DIZZINESS [None]
  - PREGNANCY [None]
  - CHEST DISCOMFORT [None]
  - ABDOMINAL PAIN [None]
  - DIARRHOEA [None]
  - DYSPNOEA [None]
  - NAUSEA [None]
  - DRUG EXPOSURE DURING PREGNANCY [None]
